FAERS Safety Report 15344152 (Version 1)
Quarter: 2018Q3

REPORT INFORMATION
  Report Type: Spontaneous
  Country: US (occurrence: US)
  Receive Date: 20180903
  Receipt Date: 20180903
  Transmission Date: 20181010
  Serious: Yes (Death)
  Sender: FDA-Public Use
  Company Number: US-ROCHE-2175715

PATIENT
  Age: 69 Year
  Sex: Male
  Weight: 79.55 kg

DRUGS (1)
  1. ACTIVASE [Suspect]
     Active Substance: ALTEPLASE
     Indication: CEREBROVASCULAR ACCIDENT
     Dosage: ONGOING:NO, 7.2 MG BOLUS, 64.48 MG DRIP, ONCE
     Route: 042
     Dates: start: 20180610

REACTIONS (3)
  - Haemorrhagic transformation stroke [Fatal]
  - Blood pressure abnormal [Fatal]
  - Subarachnoid haemorrhage [Fatal]

NARRATIVE: CASE EVENT DATE: 20180610
